FAERS Safety Report 8479187 (Version 2)
Quarter: 2013Q1

REPORT INFORMATION
  Report Type: Spontaneous
  Country: IN (occurrence: IN)
  Receive Date: 20120327
  Receipt Date: 20130131
  Transmission Date: 20140127
  Serious: Yes (Hospitalization, Other)
  Sender: FDA-Public Use
  Company Number: IN-ELI_LILLY_AND_COMPANY-IN201203004560

PATIENT
  Age: 57 Year
  Sex: Female

DRUGS (4)
  1. FLUOXETINE HYDROCHLORIDE [Suspect]
     Dosage: 60 MG, QD
  2. FLUOXETINE HYDROCHLORIDE [Suspect]
     Dosage: 40 MG, QD
  3. METOPROLOL [Concomitant]
     Dosage: 100 MG, QD FOR LAST SEVEN YEARS
  4. METOPROLOL [Concomitant]
     Dosage: 50 MG, THE MORNING OF SURGERY

REACTIONS (2)
  - Serotonin syndrome [Recovered/Resolved]
  - Coronary artery occlusion [Unknown]
